FAERS Safety Report 26100650 (Version 1)
Quarter: 2025Q4

REPORT INFORMATION
  Report Type: Spontaneous
  Country: US (occurrence: US)
  Receive Date: 20251128
  Receipt Date: 20251128
  Transmission Date: 20260118
  Serious: No
  Sender: BIONPHARMA INC.
  Company Number: US-Bion-015321

PATIENT
  Age: 79 Year
  Sex: Male

DRUGS (1)
  1. LOPERAMIDE HYDROCHLORIDE [Suspect]
     Active Substance: LOPERAMIDE HYDROCHLORIDE
     Indication: Diarrhoea
     Dosage: 1 TABLET
     Route: 048
     Dates: start: 20250918

REACTIONS (1)
  - Inappropriate schedule of product administration [Unknown]
